FAERS Safety Report 4815106-2 (Version None)
Quarter: 2005Q4

REPORT INFORMATION
  Report Type: 
  Country: None (occurrence: None)
  Receive Date: 20051026
  Receipt Date: 20051007
  Transmission Date: 20060501
  Serious: Yes (Other)
  Sender: FDA-Public Use
  Company Number: FR_051007280

PATIENT
  Age: 63 Year
  Sex: Male

DRUGS (7)
  1. ALIMTA [Suspect]
     Indication: NON-SMALL CELL LUNG CANCER
     Dosage: 500 MG/M2/L OTHER
     Route: 048
     Dates: start: 20050901
  2. FOLIC ACID [Concomitant]
  3. VITAMIN B-12 [Concomitant]
  4. CORTICOSEROID  NOS [Concomitant]
  5. IXPRIM [Concomitant]
  6. EFFERALGAN CODEINE [Concomitant]
  7. BENZODIAZEPINE [Concomitant]

REACTIONS (3)
  - HEPATOCELLULAR DAMAGE [None]
  - METASTASES TO LIVER [None]
  - NON-SMALL CELL LUNG CANCER RECURRENT [None]
